FAERS Safety Report 11718547 (Version 2)
Quarter: 2015Q4

REPORT INFORMATION
  Report Type: Report from Study
  Country: NL (occurrence: NL)
  Receive Date: 20151110
  Receipt Date: 20151216
  Transmission Date: 20160304
  Serious: Yes (Hospitalization)
  Sender: FDA-Public Use
  Company Number: NL-BAYER-2015-457080

PATIENT
  Age: 63 Year
  Sex: Male
  Weight: 89 kg

DRUGS (2)
  1. PACLITAXEL. [Suspect]
     Active Substance: PACLITAXEL
     Indication: GASTROOESOPHAGEAL CANCER
     Dosage: DAILY DOSE 80 MG/M2 (DAY 1, 8, 15 OF 28 DAY CYCLE)
     Route: 042
     Dates: start: 20150727, end: 20151026
  2. REGORAFENIB [Suspect]
     Active Substance: REGORAFENIB
     Indication: GASTROOESOPHAGEAL CANCER
     Dosage: 80 MG, QD (DAY 1-21)
     Route: 048
     Dates: start: 20150727, end: 20151027

REACTIONS (2)
  - Ureteric rupture [Recovered/Resolved with Sequelae]
  - Calculus urinary [Unknown]

NARRATIVE: CASE EVENT DATE: 20151027
